FAERS Safety Report 16659005 (Version 3)
Quarter: 2020Q1

REPORT INFORMATION
  Report Type: Report from Study
  Country: US (occurrence: US)
  Receive Date: 20190801
  Receipt Date: 20200224
  Transmission Date: 20200409
  Serious: No
  Sender: FDA-Public Use
  Company Number: US-AMGEN-USASP2019120505

PATIENT
  Age: 69 Year
  Sex: Female

DRUGS (1)
  1. PROLIA [Suspect]
     Active Substance: DENOSUMAB
     Indication: OSTEOPOROSIS POSTMENOPAUSAL
     Dosage: 60 MILLIGRAM, Q6MO
     Route: 065
     Dates: start: 201902

REACTIONS (17)
  - Arthralgia [Recovered/Resolved]
  - Chest pain [Recovering/Resolving]
  - Eye pain [Not Recovered/Not Resolved]
  - Adverse event [Unknown]
  - Back pain [Recovered/Resolved]
  - Gastritis [Recovered/Resolved]
  - Dry mouth [Not Recovered/Not Resolved]
  - Liver function test increased [Unknown]
  - Dysphonia [Unknown]
  - Pruritus [Recovered/Resolved]
  - Condition aggravated [Unknown]
  - Pyrexia [Not Recovered/Not Resolved]
  - Blood pressure increased [Unknown]
  - Dyspnoea [Not Recovered/Not Resolved]
  - Facial pain [Recovered/Resolved]
  - Dysphagia [Not Recovered/Not Resolved]
  - Headache [Not Recovered/Not Resolved]

NARRATIVE: CASE EVENT DATE: 2019
